FAERS Safety Report 8602878-4 (Version None)
Quarter: 2012Q3

REPORT INFORMATION
  Report Type: 
  Country: None (occurrence: None)
  Receive Date: 20120817
  Receipt Date: 20120809
  Transmission Date: 20120928
  Serious: Yes (Congenital Anomaly)
  Sender: FDA-Public Use
  Company Number: US-GLAXOSMITHKLINE-A0989875A

PATIENT
  Sex: Female
  Weight: 3.6 kg

DRUGS (1)
  1. PAXIL [Suspect]
     Indication: DEPRESSION
     Route: 064

REACTIONS (4)
  - MENINGOMYELOCELE [None]
  - FOETAL EXPOSURE DURING PREGNANCY [None]
  - CEREBRAL DISORDER [None]
  - CORTICAL DYSPLASIA [None]
